FAERS Safety Report 10228028 (Version 1)
Quarter: 2014Q2

REPORT INFORMATION
  Report Type: Spontaneous
  Country: FR (occurrence: FR)
  Receive Date: 20140610
  Receipt Date: 20140610
  Transmission Date: 20141212
  Serious: Yes (Other)
  Sender: FDA-Public Use
  Company Number: FR-PFIZER INC-2014152287

PATIENT
  Age: 61 Year
  Sex: Male
  Weight: 73 kg

DRUGS (8)
  1. TAHOR [Suspect]
     Dosage: 80 MG, 1X/DAY
     Route: 048
  2. SPECIAFOLDINE [Concomitant]
     Dosage: 10 MG, DAILY
  3. CORTANCYL [Concomitant]
     Dosage: 8 MG, DAILY
     Dates: end: 20140402
  4. INEXIUM /01479302/ [Concomitant]
     Dosage: 1 DF, DAILY
  5. CARDENSIEL [Concomitant]
     Dosage: 1 DF, DAILY
  6. PLAVIX [Concomitant]
     Dosage: 1 DF, DAILY
  7. BECILAN [Concomitant]
     Dosage: 250 MG, DAILY
     Dates: start: 20140320
  8. RIFATER [Concomitant]
     Dosage: 5 DF, DAILY
     Dates: start: 20140320

REACTIONS (1)
  - Hypocholesterolaemia [Unknown]
